FAERS Safety Report 6168590-9 (Version None)
Quarter: 2009Q2

REPORT INFORMATION
  Report Type: 
  Country: None (occurrence: None)
  Receive Date: 20090423
  Receipt Date: 20090421
  Transmission Date: 20091009
  Serious: Yes (Hospitalization)
  Sender: FDA-Public Use
  Company Number: SP02349

PATIENT
  Age: 55 Year
  Sex: Female

DRUGS (1)
  1. XIFAXAN [Suspect]
     Indication: HEPATIC ENCEPHALOPATHY
     Dosage: (2 IN 1 D), ORAL
     Route: 048
     Dates: start: 20090331, end: 20090414

REACTIONS (2)
  - GINGIVAL BLEEDING [None]
  - THROMBOCYTOPENIA [None]
